FAERS Safety Report 5037225-0 (Version None)
Quarter: 2006Q2

REPORT INFORMATION
  Report Type: 
  Country: None (occurrence: None)
  Receive Date: 20060628
  Receipt Date: 20060622
  Transmission Date: 20061013
  Serious: Yes (Other)
  Sender: FDA-Public Use
  Company Number: GB-GLAXOSMITHKLINE-B0428535A

PATIENT
  Sex: Female

DRUGS (1)
  1. NIQUITIN CQ LOZENGE [Suspect]
     Route: 002
     Dates: start: 20050801

REACTIONS (6)
  - ANAEMIA [None]
  - DEPRESSION [None]
  - FACE OEDEMA [None]
  - FATIGUE [None]
  - PLATELET COUNT DECREASED [None]
  - TREATMENT NONCOMPLIANCE [None]
